FAERS Safety Report 25730689 (Version 1)
Quarter: 2025Q3

REPORT INFORMATION
  Report Type: Spontaneous
  Country: US (occurrence: None)
  Receive Date: 20250826
  Receipt Date: 20250826
  Transmission Date: 20251020
  Serious: Yes (Life-Threatening, Hospitalization, Disabling)
  Sender: FDA-CTU
  Company Number: None

PATIENT
  Age: 80 Year
  Sex: Male
  Weight: 90.72 kg

DRUGS (4)
  1. KEYTRUDA [Suspect]
     Active Substance: PEMBROLIZUMAB
     Indication: Clear cell renal cell carcinoma
     Dates: start: 20250717, end: 20250717
  2. lycia [Concomitant]
  3. ASPIRIN [Concomitant]
     Active Substance: ASPIRIN
  4. labatalol [Concomitant]

REACTIONS (5)
  - Hepatic enzyme increased [None]
  - Spinal instability [None]
  - Myositis [None]
  - Myocarditis [None]
  - Myasthenia gravis [None]

NARRATIVE: CASE EVENT DATE: 20250811
